FAERS Safety Report 6173021-9 (Version None)
Quarter: 2009Q2

REPORT INFORMATION
  Report Type: 
  Country: None (occurrence: None)
  Receive Date: 20090430
  Receipt Date: 20090330
  Transmission Date: 20091009
  Serious: No
  Sender: FDA-Public Use
  Company Number: US-BAYER-200910374BCC

PATIENT
  Age: 93 Year
  Sex: Male
  Weight: 64 kg

DRUGS (3)
  1. ALEVE [Suspect]
     Indication: ARTHRITIS
     Dosage: TOTAL DAILY DOSE: 440 MG  UNIT DOSE: 220 MG
     Dates: start: 20050101
  2. HYDROCODONE BITARTRATE [Concomitant]
  3. OMEPRAZOLE [Concomitant]

REACTIONS (1)
  - DRY MOUTH [None]
